FAERS Safety Report 5193019-7 (Version None)
Quarter: 2006Q4

REPORT INFORMATION
  Report Type: 
  Country: None (occurrence: None)
  Receive Date: 20061228
  Receipt Date: 20060223
  Transmission Date: 20070319
  Serious: No
  Sender: FDA-Public Use
  Company Number: US-GLAXOSMITHKLINE-A0594985A

PATIENT
  Age: 75 Year
  Sex: Male

DRUGS (4)
  1. AVODART [Suspect]
     Dosage: .5MG VARIABLE DOSE
     Route: 048
  2. CALCIUM CHANNEL BLOCKER [Concomitant]
  3. BETA BLOCKER [Concomitant]
  4. DIURETIC [Concomitant]

REACTIONS (1)
  - DRUG INEFFECTIVE [None]
